FAERS Safety Report 9369427 (Version 7)
Quarter: 2013Q4

REPORT INFORMATION
  Report Type: Spontaneous
  Country: US (occurrence: US)
  Receive Date: 20130626
  Receipt Date: 20131204
  Transmission Date: 20140711
  Serious: Yes (Other)
  Sender: FDA-Public Use
  Company Number: US-MERCK-1306USA012252

PATIENT
  Sex: Female
  Weight: 61.13 kg

DRUGS (5)
  1. JANUVIA [Suspect]
     Indication: TYPE 2 DIABETES MELLITUS
     Dosage: 100 MG, QD
     Route: 048
     Dates: start: 20110722, end: 20120507
  2. GLUCOTROL XL [Concomitant]
     Indication: TYPE 2 DIABETES MELLITUS
     Dosage: 5 MG, QD
     Route: 048
  3. LOTENSIN (CAPTOPRIL) [Concomitant]
     Indication: HYPERTENSION
     Dosage: 20-25 MG, QD
     Route: 048
  4. LOVASTATIN [Concomitant]
     Indication: HYPERCHOLESTEROLAEMIA
     Dosage: 10 MG, QD
     Route: 048
  5. METFORMIN [Concomitant]

REACTIONS (27)
  - Adenocarcinoma pancreas [Unknown]
  - Urinary tract infection [Unknown]
  - Sinus disorder [Unknown]
  - Musculoskeletal pain [Unknown]
  - Breath sounds abnormal [Unknown]
  - Decreased appetite [Unknown]
  - Anaemia [Unknown]
  - Neutropenia [Unknown]
  - Adverse event [Unknown]
  - Anaemia of malignant disease [Unknown]
  - Adverse event [Unknown]
  - Thrombocytopenia [Unknown]
  - Oedema peripheral [Unknown]
  - Hypotension [Unknown]
  - Anaemia macrocytic [Unknown]
  - Irritable bowel syndrome [Unknown]
  - Insomnia [Unknown]
  - Chills [Unknown]
  - Leukocytosis [Unknown]
  - Pain [Unknown]
  - Constipation [Unknown]
  - Back pain [Unknown]
  - Arthralgia [Not Recovered/Not Resolved]
  - Nausea [Unknown]
  - Vomiting [Unknown]
  - Drug ineffective [Unknown]
  - Biliary dilatation [Unknown]
